FAERS Safety Report 7929987 (Version 11)
Quarter: 2013Q3

REPORT INFORMATION
  Report Type: Spontaneous
  Country: US (occurrence: US)
  Receive Date: 20110504
  Receipt Date: 20130902
  Transmission Date: 20140515
  Serious: Yes (Other)
  Sender: FDA-Public Use
  Company Number: PHEH2011US00471

PATIENT
  Age: 59 Year
  Sex: Male

DRUGS (6)
  1. ZOMETA [Suspect]
     Dosage: 4 MG, QMO
     Route: 042
  2. ZOMETA [Suspect]
     Route: 042
     Dates: start: 20070511, end: 20100303
  3. REVLIMID [Concomitant]
  4. TYLENOL [Concomitant]
  5. METOPROLOL [Concomitant]
  6. WARFARIN [Concomitant]

REACTIONS (66)
  - Osteonecrosis of jaw [Unknown]
  - Pain [Unknown]
  - Infection [Unknown]
  - Deformity [Unknown]
  - Injury [Unknown]
  - Emotional distress [Unknown]
  - Dental discomfort [Unknown]
  - Anxiety [Unknown]
  - Tooth abscess [Unknown]
  - Bone lesion [Unknown]
  - Exposed bone in jaw [Unknown]
  - Oral disorder [Unknown]
  - Excoriation [Unknown]
  - Bone fragmentation [Unknown]
  - Oropharyngeal plaque [Unknown]
  - Gingivitis [Unknown]
  - Gingival erythema [Unknown]
  - Skin lesion [Unknown]
  - Bone loss [Unknown]
  - Loose tooth [Unknown]
  - Mitral valve disease [Unknown]
  - Plasma cell myeloma [Unknown]
  - Bronchitis [Unknown]
  - Sinusitis [Unknown]
  - Contusion [Unknown]
  - Fall [Unknown]
  - Atrial fibrillation [Unknown]
  - Dyspnoea [Unknown]
  - Metastases to bone [Unknown]
  - Pleural effusion [Unknown]
  - Pulmonary oedema [Unknown]
  - Atelectasis [Unknown]
  - Pelvic fracture [Unknown]
  - Rib fracture [Unknown]
  - Gastrooesophageal reflux disease [Unknown]
  - Cardiac failure congestive [Unknown]
  - Emphysema [Unknown]
  - Atrioventricular block first degree [Unknown]
  - Hypertension [Unknown]
  - Plasmacytoma [Unknown]
  - Intervertebral disc degeneration [Unknown]
  - Osteoarthritis [Unknown]
  - Metastases to meninges [Unknown]
  - Aortic valve sclerosis [Unknown]
  - Spinal deformity [Unknown]
  - Intervertebral disc protrusion [Unknown]
  - Post herpetic neuralgia [Unknown]
  - Herpes zoster [Unknown]
  - Colon adenoma [Unknown]
  - Basal cell carcinoma [Unknown]
  - Hyperkeratosis [Unknown]
  - Pulmonary fibrosis [Unknown]
  - Facet joint syndrome [Unknown]
  - Spinal osteoarthritis [Unknown]
  - Aortic calcification [Unknown]
  - Vertebral foraminal stenosis [Unknown]
  - Spinal compression fracture [Unknown]
  - Cataract nuclear [Unknown]
  - Cataract subcapsular [Unknown]
  - Arthropathy [Unknown]
  - Periodontal disease [Unknown]
  - Plasmacytosis [Unknown]
  - Arthralgia [Unknown]
  - Back pain [Unknown]
  - Scar [Unknown]
  - Dry mouth [Unknown]
